FAERS Safety Report 17677266 (Version 1)
Quarter: 2020Q2

REPORT INFORMATION
  Report Type: Spontaneous
  Country: AT (occurrence: AT)
  Receive Date: 20200416
  Receipt Date: 20200416
  Transmission Date: 20200714
  Serious: Yes (Death, Hospitalization, Other)
  Sender: FDA-Public Use
  Company Number: DE-ELI_LILLY_AND_COMPANY-AT202001013717

PATIENT
  Age: 61 Year
  Sex: Male

DRUGS (1)
  1. RAMUCIRUMAB [Suspect]
     Active Substance: RAMUCIRUMAB
     Indication: HEPATOCELLULAR CARCINOMA
     Dosage: 8 MG/KG, 2/W
     Route: 065
     Dates: start: 20181227, end: 20200116

REACTIONS (8)
  - Multiple organ dysfunction syndrome [Fatal]
  - Hepatic encephalopathy [Unknown]
  - Hypotension [Unknown]
  - Hepatic encephalopathy [Recovered/Resolved]
  - Urinary tract infection [Unknown]
  - Infection [Unknown]
  - Renal failure [Unknown]
  - Dehydration [Unknown]

NARRATIVE: CASE EVENT DATE: 201911
